FAERS Safety Report 10467374 (Version 1)
Quarter: 2014Q3

REPORT INFORMATION
  Report Type: Spontaneous
  Country: US (occurrence: US)
  Receive Date: 20140922
  Receipt Date: 20140922
  Transmission Date: 20150326
  Serious: Yes (Other)
  Sender: FDA-Public Use
  Company Number: US-PFIZER INC-2014260444

PATIENT
  Age: 57 Year
  Sex: Female
  Weight: 90.7 kg

DRUGS (1)
  1. XELJANZ [Suspect]
     Active Substance: TOFACITINIB CITRATE
     Indication: RHEUMATOID ARTHRITIS
     Dosage: 5 MG, 2X/DAY
     Dates: start: 201405, end: 201408

REACTIONS (9)
  - Seborrhoea [Unknown]
  - Acne [Unknown]
  - Neoplasm progression [Unknown]
  - Hair growth abnormal [Unknown]
  - Pain [Unknown]
  - Muscle spasms [Unknown]
  - Uterine disorder [Unknown]
  - Drug ineffective [Unknown]
  - Menopausal symptoms [Unknown]

NARRATIVE: CASE EVENT DATE: 2014
